FAERS Safety Report 6169427-4 (Version None)
Quarter: 2009Q2

REPORT INFORMATION
  Report Type: 
  Country: None (occurrence: None)
  Receive Date: 20090428
  Receipt Date: 20090417
  Transmission Date: 20091009
  Serious: Yes (Other)
  Sender: FDA-Public Use
  Company Number: PHHY2009DE15440

PATIENT
  Sex: Female

DRUGS (4)
  1. DIOVAN [Suspect]
     Dosage: 40 MG
     Route: 048
     Dates: start: 20090401, end: 20090414
  2. DIOVAN [Suspect]
     Dosage: 80 MG
     Route: 048
     Dates: start: 20090415
  3. DICLOFENAC [Concomitant]
  4. PARACETAMOL [Concomitant]

REACTIONS (6)
  - BODY TEMPERATURE INCREASED [None]
  - LYMPHADENOPATHY [None]
  - OROPHARYNGEAL PAIN [None]
  - URINARY TRACT INFECTION [None]
  - URINE COLOUR ABNORMAL [None]
  - WHITE BLOOD CELLS URINE POSITIVE [None]
